FAERS Safety Report 18306710 (Version 1)
Quarter: 2020Q3

REPORT INFORMATION
  Report Type: Spontaneous
  Country: US (occurrence: US)
  Receive Date: 20200924
  Receipt Date: 20200924
  Transmission Date: 20201103
  Serious: No
  Sender: FDA-Public Use
  Company Number: None

PATIENT
  Age: 19 Year
  Sex: Female
  Weight: 70.3 kg

DRUGS (8)
  1. AMLODIPINE BESYLATE. [Concomitant]
     Active Substance: AMLODIPINE BESYLATE
  2. DULERA 200 MCG/5MCG/INH 2 PUFF BID [Concomitant]
  3. CETIRIZINE 10 MG QD [Concomitant]
  4. OMEPRAZOLE 20 MG DR QD [Concomitant]
  5. RUXIENCE [Suspect]
     Active Substance: RITUXIMAB-PVVR
     Indication: SYSTEMIC LUPUS ERYTHEMATOSUS
     Dosage: ?          OTHER FREQUENCY:Q3 WEEKS;?
     Route: 041
     Dates: start: 20200922, end: 20200922
  6. PLAQUENIL 200 MG 2 TABS ORALLY 5X A WEEK (M?F) [Concomitant]
  7. VIVLODEX 5 MG QD [Concomitant]
  8. PREDNISONE 10 MG TAB 4 TABS ORALLY 2 TIMES A DAY [Concomitant]

REACTIONS (3)
  - Infusion related reaction [None]
  - Product substitution issue [None]
  - Rash erythematous [None]

NARRATIVE: CASE EVENT DATE: 20200921
